FAERS Safety Report 4762660-5 (Version None)
Quarter: 2005Q3

REPORT INFORMATION
  Report Type: 
  Country: None (occurrence: None)
  Receive Date: 20050907
  Receipt Date: 20050830
  Transmission Date: 20060218
  Serious: Yes (Disabling, Other)
  Sender: FDA-Public Use
  Company Number: 2005GB01676

PATIENT
  Age: 67 Year
  Sex: Male
  Weight: 84 kg

DRUGS (5)
  1. OMEPRAZOLE [Suspect]
     Indication: HELICOBACTER INFECTION
     Route: 048
     Dates: start: 20050620, end: 20050627
  2. CLARITHROMYCIN [Concomitant]
     Indication: HELICOBACTER INFECTION
     Route: 048
     Dates: start: 20050620, end: 20050627
  3. METRONIDAZOLE [Concomitant]
     Route: 048
     Dates: start: 20050620, end: 20050627
  4. PARACETAMOL [Concomitant]
     Route: 048
  5. IBUPROFEN [Concomitant]
     Route: 048

REACTIONS (1)
  - PHLEBITIS [None]
